FAERS Safety Report 7282013-8 (Version None)
Quarter: 2011Q1

REPORT INFORMATION
  Report Type: 
  Country: None (occurrence: None)
  Receive Date: 20110208
  Receipt Date: 20101223
  Transmission Date: 20110831
  Serious: Yes (Disabling)
  Sender: FDA-Public Use
  Company Number: PHHY2010DK90452

PATIENT
  Sex: Male

DRUGS (7)
  1. CORODIL [Concomitant]
     Indication: CARDIAC FAILURE
     Dates: start: 20060101, end: 20101215
  2. FUCIDINE CAP [Interacting]
     Indication: CARDIAC INFECTION
     Dosage: 500 MG, TID
     Route: 048
     Dates: start: 20101109, end: 20101215
  3. CORDARONE [Interacting]
     Indication: CONDUCTION DISORDER
     Dosage: 200 MG, DAILY
     Route: 048
     Dates: start: 20100928, end: 20101210
  4. SERTRALINE HYDROCHLORIDE [Concomitant]
     Indication: DEPRESSION
     Dates: start: 20090101, end: 20101215
  5. SIMVASTATIN [Suspect]
     Indication: HYPERCHOLESTEROLAEMIA
     Dosage: 40 MG, DAILY
     Route: 048
     Dates: start: 20060101, end: 20101215
  6. BISOPROLOL [Concomitant]
     Indication: CARDIAC FAILURE
     Dates: start: 20060101, end: 20101215
  7. DICLOXACILLIN [Concomitant]
     Indication: INFECTION
     Dates: start: 20101211

REACTIONS (3)
  - RENAL FAILURE ACUTE [None]
  - RHABDOMYOLYSIS [None]
  - DRUG INTERACTION [None]
